FAERS Safety Report 19932146 (Version 3)
Quarter: 2023Q1

REPORT INFORMATION
  Report Type: Report from Study
  Country: MX (occurrence: MX)
  Receive Date: 20211007
  Receipt Date: 20230206
  Transmission Date: 20230418
  Serious: Yes (Hospitalization, Disabling)
  Sender: FDA-Public Use
  Company Number: MX-ABBVIE-21K-107-4110273-00

PATIENT
  Sex: Female
  Weight: 69 kg

DRUGS (2)
  1. HUMIRA [Suspect]
     Active Substance: ADALIMUMAB
     Indication: Rheumatoid arthritis
     Route: 058
     Dates: start: 20190715
  2. HUMIRA [Suspect]
     Active Substance: ADALIMUMAB
     Route: 058

REACTIONS (7)
  - Arthropathy [Unknown]
  - Knee arthroplasty [Recovering/Resolving]
  - Gait disturbance [Unknown]
  - Device difficult to use [Unknown]
  - Mobility decreased [Unknown]
  - Arthralgia [Unknown]
  - Surgery [Unknown]

NARRATIVE: CASE EVENT DATE: 20210101
